FAERS Safety Report 23217292 (Version 1)
Quarter: 2023Q4

REPORT INFORMATION
  Report Type: Spontaneous
  Country: US (occurrence: None)
  Receive Date: 20231121
  Receipt Date: 20231121
  Transmission Date: 20240109
  Serious: Yes (Other)
  Sender: FDA-Public Use
  Company Number: None

PATIENT
  Age: 74 Year
  Sex: 0
  Weight: 80.55 kg

DRUGS (9)
  1. PAXLOVID [Suspect]
     Active Substance: NIRMATRELVIR\RITONAVIR
     Indication: COVID-19
     Dosage: 30 TABLETS TWICE A DAY  BY MOUTH ?
     Route: 050
     Dates: start: 20231118, end: 20231120
  2. HERBALS\TURMERIC [Concomitant]
     Active Substance: HERBALS\TURMERIC
  3. BIOTIN [Concomitant]
     Active Substance: BIOTIN
  4. TYLENOL [Concomitant]
     Active Substance: ACETAMINOPHEN
  5. GINKGO [Concomitant]
     Active Substance: GINKGO
  6. wild alaskan salmon oil omega-3 [Concomitant]
  7. sambucu black elderberry [Concomitant]
  8. CRANBERRY [Concomitant]
     Active Substance: CRANBERRY
  9. RED YEAST RICE PLUS [Concomitant]

REACTIONS (9)
  - Hypersensitivity [None]
  - Genital ulceration [None]
  - Genital blister [None]
  - Skin exfoliation [None]
  - Dysphagia [None]
  - Throat tightness [None]
  - Dysphonia [None]
  - Candida infection [None]
  - Productive cough [None]

NARRATIVE: CASE EVENT DATE: 20231119
